FAERS Safety Report 6941286-9 (Version None)
Quarter: 2010Q3

REPORT INFORMATION
  Report Type: 
  Country: None (occurrence: None)
  Receive Date: 20100824
  Receipt Date: 20100824
  Transmission Date: 20110219
  Serious: Yes (Hospitalization)
  Sender: FDA-Public Use
  Company Number: None

PATIENT
  Age: 43 Year
  Sex: Female
  Weight: 75.7507 kg

DRUGS (4)
  1. AVASTIN [Suspect]
     Indication: BREAST CANCER METASTATIC
     Dosage: 15 MG/KG EVERY 3 WEEKS IV
     Route: 042
     Dates: start: 20100713, end: 20100803
  2. HERCEPTIN [Concomitant]
  3. AVASTIN [Concomitant]
  4. TAXOTERE [Concomitant]

REACTIONS (6)
  - BLOOD PRESSURE DECREASED [None]
  - CATHETER SITE PAIN [None]
  - EMPYEMA [None]
  - HEART RATE INCREASED [None]
  - LUNG DISORDER [None]
  - PYREXIA [None]
